FAERS Safety Report 7906258 (Version 2)
Quarter: 2013Q4

REPORT INFORMATION
  Report Type: Report from Study
  Country: DE (occurrence: DE)
  Receive Date: 20110420
  Receipt Date: 20131001
  Transmission Date: 20140711
  Serious: Yes (Hospitalization)
  Sender: FDA-Public Use
  Company Number: DE-BAYER-2011-033403

PATIENT
  Age: 76 Year
  Sex: Male

DRUGS (15)
  1. SORAFENIB (RAF KINASE INHIBITOR) [Suspect]
     Indication: RENAL CELL CARCINOMA
     Dosage: UNK
     Dates: start: 20110328, end: 20110408
  2. ALLO-300 [Concomitant]
     Dosage: 0.5-0-0-0
  3. SIMVASTATIN [Concomitant]
     Dosage: 0-0-1-0
  4. AMIODARON [Concomitant]
     Dosage: 200 MG, 1-0-0.5-0
  5. OMEP [Concomitant]
     Dosage: 40 MG, 1-0-0-0
  6. RAMIPRIL [Concomitant]
     Dosage: 5/25 MG, 1-0-0-0
  7. L-THYROXIN [Concomitant]
     Dosage: 150 MG, 1-0-0-0
  8. AMLODIPIN [Concomitant]
     Dosage: 5 MG, 0-0-1-0
  9. EMSELEX [Concomitant]
     Dosage: 7.5 MG, 2-0-0-0
  10. SYMBICORT [Concomitant]
     Dosage: 160/4.5 MG, 1-0-1-0
  11. TRAMADOL [Concomitant]
     Indication: PAIN
     Dosage: 30-30-30-0 PRN
  12. ASS [Concomitant]
     Dosage: 300, 1-0-0
  13. TORASEMID [Concomitant]
     Dosage: 10 MG, 0.5-0-0
  14. INNOHEP [Concomitant]
     Indication: THROMBOSIS PROPHYLAXIS
  15. SUNITINIB [Suspect]
     Indication: RENAL CELL CARCINOMA
     Dosage: UNK

REACTIONS (5)
  - General physical health deterioration [Recovered/Resolved]
  - Dehydration [Recovered/Resolved]
  - Pneumonia [Recovered/Resolved]
  - Vomiting [None]
  - Diarrhoea [None]
